FAERS Safety Report 7983474-9 (Version None)
Quarter: 2011Q4

REPORT INFORMATION
  Report Type: 
  Country: None (occurrence: None)
  Receive Date: 20111215
  Receipt Date: 20111206
  Transmission Date: 20120403
  Serious: Yes (Other)
  Sender: FDA-Public Use
  Company Number: US-ASTRAZENECA-2011SE72798

PATIENT
  Age: 54 Year
  Sex: Female

DRUGS (7)
  1. SEROQUEL XR [Suspect]
     Indication: BIPOLAR DISORDER
     Route: 048
  2. NASAPAM [Concomitant]
  3. IRONS [Concomitant]
     Dosage: TWO IRONS A DAY
  4. ALISS [Concomitant]
     Indication: PAIN
     Dosage: IN THE MORNING AND EVENING
  5. SEROQUEL XR [Suspect]
     Indication: ANXIETY
     Route: 048
  6. SEROQUEL XR [Suspect]
     Indication: BIPOLAR I DISORDER
     Route: 048
  7. FISH OIL [Concomitant]

REACTIONS (1)
  - RHEUMATOID ARTHRITIS [None]
